FAERS Safety Report 8725243 (Version 2)
Quarter: 2012Q4

REPORT INFORMATION
  Report Type: 
  Country: AU (occurrence: AU)
  Receive Date: 20120815
  Receipt Date: 20121114
  Transmission Date: 20130627
  Serious: Yes (Death, Hospitalization, Other)
  Sender: FDA-Public Use
  Company Number: AU-CELGENEUS-008-21880-12080852

PATIENT
  Age: 74 Year
  Sex: Female

DRUGS (10)
  1. REVLIMID [Suspect]
     Indication: MULTIPLE MYELOMA
     Dosage: 25 Milligram
     Route: 048
  2. REVLIMID [Suspect]
     Dosage: 15 Milligram
     Route: 048
     Dates: start: 20110728, end: 20120723
  3. DIGOXINE [Concomitant]
     Indication: ATRIAL FIBRILLATION
     Route: 065
  4. METOPROLOL [Concomitant]
     Indication: ATRIAL FIBRILLATION
     Dosage: 12.5 Milligram
     Route: 065
  5. ASPIRINE [Concomitant]
     Indication: ATRIAL FIBRILLATION
     Dosage: 100 Milligram
     Route: 065
  6. BACTRIM [Concomitant]
     Indication: PROPHYLAXIS
     Dosage: 4 Tablet
     Route: 065
     Dates: start: 20120728
  7. BONEFOS [Concomitant]
     Indication: BONE DISORDER NOS
     Route: 065
  8. DEXAMETHASONE [Concomitant]
     Indication: CHEMOTHERAPY
     Dosage: 5.7143 Milligram
     Route: 065
     Dates: start: 20120728
  9. AMITRIPTYLINE [Concomitant]
     Indication: ANXIETY
     Dosage: 25 Milligram
     Route: 065
  10. FELODIPINE [Concomitant]
     Indication: HYPERTENSION
     Dosage: 20 Milligram
     Route: 065

REACTIONS (4)
  - Plasma cell myeloma [Fatal]
  - Renal failure acute [Fatal]
  - Gastroenteritis [Unknown]
  - Pancytopenia [Unknown]
